FAERS Safety Report 20798113 (Version 6)
Quarter: 2022Q3

REPORT INFORMATION
  Report Type: Spontaneous
  Country: CA (occurrence: CA)
  Receive Date: 20220507
  Receipt Date: 20220813
  Transmission Date: 20221026
  Serious: Yes (Other)
  Sender: FDA-Public Use
  Company Number: CA-CELLTRION INC.-2020CA034827

PATIENT

DRUGS (4)
  1. INFLECTRA [Suspect]
     Active Substance: INFLIXIMAB-DYYB
     Indication: Crohn^s disease
     Dosage: 400 MG EVERY 8 WEEKS
     Route: 042
     Dates: start: 20200207, end: 20200207
  2. INFLECTRA [Suspect]
     Active Substance: INFLIXIMAB-DYYB
     Dosage: 400 MG EVERY 8 WEEKS
     Route: 042
     Dates: start: 20200921, end: 20200921
  3. INFLECTRA [Suspect]
     Active Substance: INFLIXIMAB-DYYB
     Dosage: 400 MG, 12 WEEKS AND 4 DAYS AFTER LAST INFUSION
     Route: 042
     Dates: start: 20201218, end: 20201218
  4. INFLECTRA [Suspect]
     Active Substance: INFLIXIMAB-DYYB
     Dosage: 400 MG EVERY 8 WEEKS
     Route: 042
     Dates: start: 20220317

REACTIONS (10)
  - Diverticulitis [Not Recovered/Not Resolved]
  - Clostridium difficile infection [Unknown]
  - Inappropriate schedule of product administration [Unknown]
  - Otorrhoea [Unknown]
  - Root canal infection [Not Recovered/Not Resolved]
  - Skin disorder [Unknown]
  - Subcutaneous abscess [Unknown]
  - Rash pruritic [Unknown]
  - Urticaria [Unknown]
  - Malaise [Not Recovered/Not Resolved]

NARRATIVE: CASE EVENT DATE: 20201218
